FAERS Safety Report 4495435-5 (Version None)
Quarter: 2004Q4

REPORT INFORMATION
  Report Type: 
  Country: None (occurrence: None)
  Receive Date: 20041108
  Receipt Date: 20041026
  Transmission Date: 20050328
  Serious: Yes (Hospitalization)
  Sender: FDA-Public Use
  Company Number: US-SOLVAY-00204003858

PATIENT
  Age: 28526 Day
  Sex: Male
  Weight: 57.5 kg

DRUGS (5)
  1. CHEMOTHERAPY [Concomitant]
     Indication: CARCINOMA
     Dosage: DAILY DOSE:  UNKNOWN
     Route: 065
  2. MARINOL [Suspect]
     Indication: APPETITE DISORDER
     Dosage: DAILY DOSE: 2.5 MILLIGRAM(S) ONCE
     Route: 048
     Dates: start: 20040917, end: 20040917
  3. NIFEDIPINE [Concomitant]
     Indication: HYPERTENSION
     Dosage: DAILY DOSE: 1 DOSAGE FORM
     Route: 048
  4. ATENOLOL [Concomitant]
     Indication: HYPERTENSION
     Dosage: DAILY DOSE: 1 DOSAGE FORM
     Route: 048
  5. SIMVASTIN [Concomitant]
     Indication: HYPERCHOLESTEROLAEMIA
     Dosage: DAILY DOSE: 1 DOSAGE FORM
     Route: 048

REACTIONS (3)
  - DEHYDRATION [None]
  - NAUSEA [None]
  - VOMITING [None]
